FAERS Safety Report 23495684 (Version 2)
Quarter: 2024Q1

REPORT INFORMATION
  Report Type: Spontaneous
  Country: US (occurrence: US)
  Receive Date: 20240207
  Receipt Date: 20240227
  Transmission Date: 20240410
  Serious: Yes (Hospitalization)
  Sender: FDA-Public Use
  Company Number: US-TEVA-VS-3134265

PATIENT
  Age: 51 Year
  Sex: Male

DRUGS (7)
  1. FENTANYL [Suspect]
     Active Substance: FENTANYL\FENTANYL CITRATE
     Indication: Drug abuse
     Route: 065
  2. THIAMINE [Concomitant]
     Active Substance: THIAMINE
     Indication: Vitamin supplementation
     Route: 065
  3. METHAMPHETAMINE [Suspect]
     Active Substance: METHAMPHETAMINE
     Indication: Drug abuse
     Route: 065
  4. BUPRENORPHINE\NALOXONE [Concomitant]
     Active Substance: BUPRENORPHINE\NALOXONE
     Indication: Drug abuse
     Dosage: 8 MG/2 MG
     Route: 065
  5. QUETIAPINE [Suspect]
     Active Substance: QUETIAPINE
     Indication: Delusion of parasitosis
     Route: 065
  6. QUETIAPINE [Suspect]
     Active Substance: QUETIAPINE
     Indication: Delusion of parasitosis
     Dosage: AT BEDTIME
     Route: 065
  7. PHENOBARBITAL [Concomitant]
     Active Substance: PHENOBARBITAL
     Indication: Alcohol withdrawal syndrome
     Route: 065

REACTIONS (3)
  - Delusion of parasitosis [Recovered/Resolved]
  - Drug abuse [Unknown]
  - Drug ineffective [Unknown]
